FAERS Safety Report 6625497-8 (Version None)
Quarter: 2010Q1

REPORT INFORMATION
  Report Type: 
  Country: None (occurrence: None)
  Receive Date: 20100305
  Receipt Date: 20100217
  Transmission Date: 20100710
  Serious: Yes (Other)
  Sender: FDA-Public Use
  Company Number: 2010S1000768

PATIENT
  Age: 68 Year
  Sex: Female

DRUGS (7)
  1. PHOSPHOSODA FLAVOR NOT SPECIFIED [Suspect]
     Indication: SURGERY
     Dosage: PO
     Route: 048
     Dates: start: 20060901
  2. PHOSPHOSODA FLAVOR NOT SPECIFIED [Suspect]
     Indication: SURGERY
     Dosage: PO
     Route: 048
     Dates: start: 20060904
  3. FLEET ENEMA (SODIUM PHOSPHATE) [Concomitant]
  4. DIOVAN /01319601/ [Concomitant]
  5. ZOCOR [Concomitant]
  6. INDAPAMIDE [Concomitant]
  7. DELESTROGEN [Concomitant]

REACTIONS (3)
  - BLOOD CREATININE INCREASED [None]
  - GLOMERULAR FILTRATION RATE DECREASED [None]
  - RENAL DISORDER [None]
